FAERS Safety Report 5952545-0 (Version None)
Quarter: 2008Q4

REPORT INFORMATION
  Report Type: 
  Country: None (occurrence: None)
  Receive Date: 20081113
  Receipt Date: 20081105
  Transmission Date: 20090506
  Serious: Yes (Hospitalization)
  Sender: FDA-Public Use
  Company Number: JP-GILEAD-2008-0018882

PATIENT
  Sex: Male

DRUGS (5)
  1. VIREAD [Suspect]
     Indication: HIV INFECTION
     Route: 048
     Dates: start: 20050912, end: 20070620
  2. TRUVADA [Suspect]
     Indication: HIV INFECTION
     Route: 048
     Dates: start: 20070621
  3. EPIVIR [Suspect]
     Dates: end: 20070621
  4. NORVIR [Concomitant]
     Dates: start: 20050912
  5. REYATAZ [Concomitant]
     Dates: start: 20050912

REACTIONS (1)
  - HEPATIC AMOEBIASIS [None]
